APPROVED DRUG PRODUCT: GASTROCROM
Active Ingredient: CROMOLYN SODIUM
Strength: 100MG/5ML
Dosage Form/Route: CONCENTRATE;ORAL
Application: N020479 | Product #001 | TE Code: AA
Applicant: VIATRIS SPECIALITY LLC
Approved: Feb 29, 1996 | RLD: Yes | RS: Yes | Type: RX